FAERS Safety Report 25795322 (Version 1)
Quarter: 2025Q3

REPORT INFORMATION
  Report Type: Spontaneous
  Country: EU (occurrence: EU)
  Receive Date: 20250912
  Receipt Date: 20250912
  Transmission Date: 20251021
  Serious: Yes (Hospitalization)
  Sender: MACLEODS
  Company Number: EU-MLMSERVICE-20241002-PI216965-00226-1

PATIENT

DRUGS (3)
  1. PREGABALIN [Suspect]
     Active Substance: PREGABALIN
     Indication: Anxiety
     Route: 065
  2. PREGABALIN [Suspect]
     Active Substance: PREGABALIN
     Dosage: DOSE INCREASED AFTER 3 DAYS OF ADMISSION
     Route: 065
  3. MIRTAZAPINE [Suspect]
     Active Substance: MIRTAZAPINE
     Indication: Initial insomnia
     Dosage: 1/4 TABLET
     Route: 065

REACTIONS (2)
  - Delirium [Recovered/Resolved]
  - Off label use [Recovered/Resolved]
